FAERS Safety Report 4666988-9 (Version None)
Quarter: 2005Q2

REPORT INFORMATION
  Report Type: 
  Country: None (occurrence: None)
  Receive Date: 20050518
  Receipt Date: 20050226
  Transmission Date: 20051028
  Serious: Yes (Other)
  Sender: FDA-Public Use
  Company Number: 2005001359

PATIENT
  Age: 31 Year
  Sex: Female
  Weight: 53.0709 kg

DRUGS (1)
  1. DEPO-PROVERA [Suspect]
     Indication: CONTRACEPTION
     Dosage: SEE IMAGE
     Route: 030
     Dates: start: 19970201, end: 19970201

REACTIONS (2)
  - OSTEOPENIA [None]
  - OSTEOPOROSIS [None]
